FAERS Safety Report 8392170-8 (Version None)
Quarter: 2012Q2

REPORT INFORMATION
  Report Type: 
  Country: None (occurrence: None)
  Receive Date: 20120529
  Receipt Date: 20120504
  Transmission Date: 20120825
  Serious: Yes (Other)
  Sender: FDA-Public Use
  Company Number: US-PFIZER INC-2012126140

PATIENT
  Age: 49 Year

DRUGS (1)
  1. LYRICA [Suspect]
     Dosage: UNK
     Dates: end: 20120401

REACTIONS (3)
  - FEELING ABNORMAL [None]
  - NEURALGIA [None]
  - DEHYDRATION [None]
